FAERS Safety Report 10308171 (Version 2)
Quarter: 2014Q3

REPORT INFORMATION
  Report Type: Report from Study
  Country: US (occurrence: US)
  Receive Date: 20140716
  Receipt Date: 20140716
  Transmission Date: 20150326
  Serious: Yes (Life-Threatening, Hospitalization, Other)
  Sender: FDA-Public Use
  Company Number: US-PFIZER INC-US-WYE-H11362409

PATIENT
  Age: 55 Year
  Sex: Female
  Weight: 83 kg

DRUGS (10)
  1. GABAPENTIN. [Concomitant]
     Active Substance: GABAPENTIN
     Dosage: UNK
     Route: 048
     Dates: start: 20090322
  2. GABAPENTIN. [Concomitant]
     Active Substance: GABAPENTIN
     Dosage: UNK
     Route: 048
     Dates: start: 200808, end: 20090321
  3. PROPOXYPHENE [Concomitant]
     Active Substance: PROPOXYPHENE
     Dosage: UNK
     Route: 048
     Dates: start: 20090817
  4. LEVOTHYROXINE [Concomitant]
     Active Substance: LEVOTHYROXINE
     Dosage: UNK
     Route: 065
     Dates: start: 1972
  5. DESVENLAFAXINE SUCCINATE MONOHYDRATE [Suspect]
     Active Substance: DESVENLAFAXINE
     Indication: MENOPAUSAL SYMPTOMS
     Dosage: 50 MG, 1X/DAY
     Route: 048
     Dates: start: 20081203, end: 20081209
  6. CYANOCOBALAMIN. [Concomitant]
     Active Substance: CYANOCOBALAMIN
     Dosage: UNK
     Route: 065
     Dates: start: 20090322
  7. FENTANYL. [Concomitant]
     Active Substance: FENTANYL
     Dosage: UNK
     Route: 062
     Dates: start: 2001
  8. HYDROCODONE [Concomitant]
     Active Substance: HYDROCODONE
     Dosage: UNK
     Route: 065
  9. DESVENLAFAXINE SUCCINATE MONOHYDRATE [Suspect]
     Active Substance: DESVENLAFAXINE
     Dosage: 100 MG, 1X/DAY
     Route: 048
     Dates: start: 20081210, end: 20090831
  10. NEXIUM [Concomitant]
     Active Substance: ESOMEPRAZOLE MAGNESIUM
     Dosage: UNK
     Route: 065
     Dates: start: 2001

REACTIONS (7)
  - Renal failure acute [Recovered/Resolved]
  - Pulmonary embolism [Recovered/Resolved]
  - Blood creatine phosphokinase increased [Recovered/Resolved]
  - Mental status changes [Recovered/Resolved]
  - Respiratory failure [Recovered/Resolved]
  - Pneumonia [Recovered/Resolved]
  - Blood creatine phosphokinase MB increased [Recovered/Resolved]

NARRATIVE: CASE EVENT DATE: 20090901
